FAERS Safety Report 10613286 (Version 10)
Quarter: 2016Q4

REPORT INFORMATION
  Report Type: Report from Study
  Country: MX (occurrence: MX)
  Receive Date: 20141128
  Receipt Date: 20161206
  Transmission Date: 20170206
  Serious: Yes (Hospitalization, Disabling)
  Sender: FDA-Public Use
  Company Number: MX-ROCHE-1360378

PATIENT
  Age: 64 Year
  Sex: Male
  Weight: 74 kg

DRUGS (10)
  1. ROACTEMRA [Suspect]
     Active Substance: TOCILIZUMAB
     Route: 042
     Dates: start: 201511
  2. PREDNISONE. [Suspect]
     Active Substance: PREDNISONE
     Indication: JUVENILE IDIOPATHIC ARTHRITIS
     Route: 048
     Dates: end: 201511
  3. PLAVIX [Concomitant]
     Active Substance: CLOPIDOGREL BISULFATE
     Route: 048
  4. PREDNISONE. [Suspect]
     Active Substance: PREDNISONE
     Route: 048
     Dates: start: 201511
  5. SIES [Suspect]
     Active Substance: HIDROSMIN
     Indication: PERIPHERAL VENOUS DISEASE
     Route: 048
     Dates: start: 2009
  6. MELOXICAM. [Concomitant]
     Active Substance: MELOXICAM
     Indication: BONE PAIN
     Dosage: AS REQUIRED
     Route: 048
  7. HORSE CHESTNUTS [Concomitant]
     Indication: VARICOSE VEIN
     Route: 048
  8. VITAMIN D3 [Concomitant]
     Active Substance: CHOLECALCIFEROL
     Route: 048
     Dates: start: 2015
  9. ROACTEMRA [Suspect]
     Active Substance: TOCILIZUMAB
     Indication: RHEUMATOID ARTHRITIS
     Dosage: LAST DOSE OF TOCILIZUMAB ON 10/JUN/2016
     Route: 042
     Dates: start: 201008, end: 20140218
  10. ROACTEMRA [Suspect]
     Active Substance: TOCILIZUMAB
     Dosage: MOST RECENT DOSE: 25/MAR/2014
     Route: 042
     Dates: start: 20140224, end: 201410

REACTIONS (20)
  - Weight decreased [Recovered/Resolved]
  - Protein C increased [Unknown]
  - Joint swelling [Recovered/Resolved]
  - Peripheral swelling [Recovered/Resolved]
  - Cough [Recovering/Resolving]
  - Skin lesion [Not Recovered/Not Resolved]
  - Feeling hot [Recovered/Resolved]
  - Increased appetite [Not Recovered/Not Resolved]
  - Burning sensation [Recovered/Resolved]
  - Weight decreased [Recovering/Resolving]
  - Weight increased [Not Recovered/Not Resolved]
  - Throat irritation [Recovering/Resolving]
  - Inguinal hernia [Recovered/Resolved]
  - Productive cough [Recovered/Resolved]
  - Limb discomfort [Unknown]
  - Animal bite [Recovered/Resolved]
  - Pharyngeal oedema [Recovering/Resolving]
  - Influenza [Recovering/Resolving]
  - Oedema peripheral [Recovering/Resolving]
  - Burning sensation [Recovering/Resolving]

NARRATIVE: CASE EVENT DATE: 201311
